FAERS Safety Report 10195606 (Version 4)
Quarter: 2014Q4

REPORT INFORMATION
  Report Type: Spontaneous
  Country: JP (occurrence: JP)
  Receive Date: 20140527
  Receipt Date: 20141202
  Transmission Date: 20150528
  Serious: Yes (Hospitalization)
  Sender: FDA-Public Use
  Company Number: JP-ROCHE-1408074

PATIENT
  Age: 82 Year
  Sex: Male
  Weight: 44 kg

DRUGS (10)
  1. BONALON [Concomitant]
     Active Substance: ALENDRONATE SODIUM
     Route: 065
     Dates: start: 20131024
  2. LUCENTIS [Suspect]
     Active Substance: RANIBIZUMAB
     Indication: RETINAL VEIN OCCLUSION
     Route: 050
     Dates: start: 20140325
  3. FLOMOX (JAPAN) [Concomitant]
     Active Substance: CEFCAPENE PIVOXIL HYDROCHLORIDE HYDRATE
     Route: 065
     Dates: start: 20140325, end: 20140328
  4. PLAVIX [Concomitant]
     Active Substance: CLOPIDOGREL BISULFATE
     Route: 065
     Dates: start: 20081117
  5. PARIET [Concomitant]
     Active Substance: RABEPRAZOLE SODIUM
     Route: 065
     Dates: start: 20081117
  6. FLIVAS [Concomitant]
     Active Substance: NAFTOPIDIL
     Route: 065
     Dates: start: 20130704
  7. EVAMYL [Concomitant]
     Active Substance: LORMETAZEPAM
     Route: 065
     Dates: start: 20080611
  8. SELBEX [Concomitant]
     Active Substance: TEPRENONE
     Route: 065
     Dates: start: 20131230
  9. MAGLAX [Concomitant]
     Active Substance: MAGNESIUM OXIDE
     Route: 065
     Dates: start: 20120718
  10. NABOAL [Concomitant]
     Route: 065
     Dates: start: 20131024

REACTIONS (5)
  - Red blood cell sedimentation rate increased [Unknown]
  - Haemoglobin decreased [Unknown]
  - Temporal arteritis [Recovering/Resolving]
  - General physical health deterioration [Unknown]
  - C-reactive protein increased [Unknown]

NARRATIVE: CASE EVENT DATE: 20140405
